FAERS Safety Report 13083480 (Version 2)
Quarter: 2017Q1

REPORT INFORMATION
  Report Type: Spontaneous
  Country: US (occurrence: US)
  Receive Date: 20170104
  Receipt Date: 20170112
  Transmission Date: 20170428
  Serious: No
  Sender: FDA-Public Use
  Company Number: ALCN2017US000455

PATIENT
  Sex: Female

DRUGS (1)
  1. IOPIDINE [Suspect]
     Active Substance: APRACLONIDINE HYDROCHLORIDE
     Indication: PRODUCT USED FOR UNKNOWN INDICATION
     Dosage: 1 GTT, UNK
     Route: 047
     Dates: start: 20161214, end: 20161214

REACTIONS (7)
  - Night blindness [Not Recovered/Not Resolved]
  - Bladder disorder [Recovered/Resolved]
  - Dry eye [Not Recovered/Not Resolved]
  - Gastrointestinal disorder [Recovered/Resolved]
  - Abnormal sensation in eye [Recovered/Resolved]
  - Eye swelling [Recovered/Resolved]
  - Nasal dryness [Not Recovered/Not Resolved]

NARRATIVE: CASE EVENT DATE: 20161214
